FAERS Safety Report 14328468 (Version 1)
Quarter: 2017Q4

REPORT INFORMATION
  Report Type: Spontaneous
  Country: US (occurrence: US)
  Receive Date: 20171227
  Receipt Date: 20171227
  Transmission Date: 20180321
  Serious: No
  Sender: FDA-Public Use
  Company Number: None

PATIENT
  Age: 15 Year
  Sex: Female
  Weight: 67.5 kg

DRUGS (1)
  1. DEPO-PROVERA [Suspect]
     Active Substance: MEDROXYPROGESTERONE ACETATE
     Indication: CONTRACEPTION
     Dosage: ?          QUANTITY:1 INJECTION(S);OTHER FREQUENCY:EVERY THREE MONTHS;?
     Route: 058

REACTIONS (6)
  - Muscle spasms [None]
  - Infertility [None]
  - Irritability [None]
  - Weight increased [None]
  - Haemorrhage [None]
  - Depression [None]
